FAERS Safety Report 9557866 (Version 1)
Quarter: 2013Q3

REPORT INFORMATION
  Report Type: Spontaneous
  Country: US (occurrence: US)
  Receive Date: 20130926
  Receipt Date: 20130926
  Transmission Date: 20140515
  Serious: Yes (Other)
  Sender: FDA-Public Use
  Company Number: US-BAYER-2013-115530

PATIENT
  Age: 48 Year
  Sex: Female

DRUGS (1)
  1. CIPRO [Suspect]
     Dosage: UNK

REACTIONS (13)
  - Amnesia [None]
  - Arthrodesis [None]
  - Tachycardia [None]
  - Tendon injury [None]
  - Cartilage injury [None]
  - Muscle injury [None]
  - Gait disturbance [None]
  - Depression [None]
  - Quality of life decreased [None]
  - Toxicity to various agents [None]
  - Visual impairment [None]
  - Disturbance in attention [None]
  - Back pain [None]
